FAERS Safety Report 12461053 (Version 1)
Quarter: 2016Q2

REPORT INFORMATION
  Report Type: Spontaneous
  Country: US (occurrence: US)
  Receive Date: 20160613
  Receipt Date: 20160613
  Transmission Date: 20160815
  Serious: No
  Sender: FDA-Public Use
  Company Number: US-ALLERGAN-1523486US

PATIENT
  Age: 46 Year
  Sex: Male

DRUGS (4)
  1. BENZOCAINE. [Concomitant]
     Active Substance: BENZOCAINE
     Dosage: UNK UNK, ONE TIME DOSE
     Route: 061
     Dates: start: 20150827, end: 20150827
  2. IBUPROFEN. [Concomitant]
     Active Substance: IBUPROFEN
     Indication: ANTIINFLAMMATORY THERAPY
     Dosage: 800 MG, ONE TIME DOSE
     Route: 048
     Dates: start: 20150827, end: 20150827
  3. KYBELLA [Suspect]
     Active Substance: DEOXYCHOLIC ACID
     Indication: FAT TISSUE INCREASED
     Dosage: ONCE, UNK
     Route: 058
     Dates: start: 20150827, end: 20150827
  4. LIDOCAINE W/TETRACAINE [Concomitant]
     Active Substance: LIDOCAINE\TETRACAINE
     Dosage: UNK UNK, ONE TIME DOSE
     Route: 061
     Dates: start: 20150827, end: 20150827

REACTIONS (5)
  - Erythema [Not Recovered/Not Resolved]
  - Induration [Not Recovered/Not Resolved]
  - Swelling face [Not Recovered/Not Resolved]
  - Injection site induration [Not Recovered/Not Resolved]
  - Injection site swelling [Not Recovered/Not Resolved]

NARRATIVE: CASE EVENT DATE: 20150827
